FAERS Safety Report 8969790 (Version 1)
Quarter: 2012Q4

REPORT INFORMATION
  Report Type: 
  Country: US (occurrence: US)
  Receive Date: 20121218
  Receipt Date: 20121218
  Transmission Date: 20130627
  Serious: No
  Sender: FDA-Public Use
  Company Number: US-009507513-1212USA005912

PATIENT
  Sex: Female

DRUGS (6)
  1. COZAAR [Suspect]
     Indication: BLOOD PRESSURE
     Dosage: 50 mg, qd
     Route: 048
     Dates: start: 20121031
  2. DANAZOL [Concomitant]
  3. ASPIRIN [Concomitant]
  4. CRESTOR [Concomitant]
  5. INDAPAMIDE [Concomitant]
  6. OMEGA-3 MARINE TRIGLYCERIDES [Concomitant]

REACTIONS (1)
  - Hyperhidrosis [Not Recovered/Not Resolved]
